FAERS Safety Report 7483671-5 (Version None)
Quarter: 2011Q2

REPORT INFORMATION
  Report Type: 
  Country: None (occurrence: None)
  Receive Date: 20110517
  Receipt Date: 20110505
  Transmission Date: 20111010
  Serious: Yes (Other)
  Sender: FDA-Public Use
  Company Number: AR-SHIRE-SPV1-2011-00204

PATIENT
  Age: 25 Year
  Sex: Female
  Weight: 62 kg

DRUGS (3)
  1. FERROUS SULFATE TAB [Concomitant]
     Indication: PREGNANCY
     Dosage: UNK
     Route: 048
     Dates: start: 20110225
  2. VELAGLUCERASE ALFA [Suspect]
     Indication: GAUCHER'S DISEASE
     Dosage: 60 IU/KG, 1X/2WKS
     Route: 041
     Dates: start: 20100501
  3. FOLIC ACID [Concomitant]
     Indication: PREGNANCY
     Dosage: UNK
     Dates: start: 20110225

REACTIONS (3)
  - PANCYTOPENIA [None]
  - DRUG EXPOSURE DURING PREGNANCY [None]
  - ANKLE FRACTURE [None]
